FAERS Safety Report 17160146 (Version 2)
Quarter: 2019Q4

REPORT INFORMATION
  Report Type: Report from Study
  Country: US (occurrence: US)
  Receive Date: 20191216
  Receipt Date: 20191230
  Transmission Date: 20200122
  Serious: Yes (Hospitalization, Other)
  Sender: FDA-Public Use
  Company Number: US-SA-2019SA342123

PATIENT
  Age: 53 Year
  Sex: Female

DRUGS (1)
  1. TERIFLUNOMIDE. [Suspect]
     Active Substance: TERIFLUNOMIDE
     Indication: MULTIPLE SCLEROSIS
     Dosage: 14 MG, QD
     Route: 048
     Dates: start: 20191025

REACTIONS (6)
  - Decreased interest [Unknown]
  - Pain in extremity [Unknown]
  - Burning sensation [Unknown]
  - Hypoaesthesia [Not Recovered/Not Resolved]
  - Multiple sclerosis relapse [Unknown]
  - Depressed mood [Unknown]

NARRATIVE: CASE EVENT DATE: 201911
